FAERS Safety Report 6072618-4 (Version None)
Quarter: 2009Q1

REPORT INFORMATION
  Report Type: 
  Country: None (occurrence: None)
  Receive Date: 20090210
  Receipt Date: 20090203
  Transmission Date: 20090719
  Serious: Yes (Hospitalization)
  Sender: FDA-Public Use
  Company Number: US-ELI_LILLY_AND_COMPANY-US200902000699

PATIENT
  Sex: Male
  Weight: 120.64 kg

DRUGS (7)
  1. BYETTA [Suspect]
     Indication: TYPE 2 DIABETES MELLITUS
     Dosage: 5 UG, 2/D
     Route: 058
     Dates: start: 20080101, end: 20080101
  2. BYETTA [Suspect]
     Dosage: 10 UG, 2/D
     Route: 058
     Dates: start: 20080101
  3. FORTAMET [Concomitant]
     Indication: TYPE 2 DIABETES MELLITUS
  4. NOVOLOG [Concomitant]
     Indication: TYPE 2 DIABETES MELLITUS
  5. LANTUS [Concomitant]
     Indication: TYPE 2 DIABETES MELLITUS
  6. GEMFIBROZIL [Concomitant]
     Indication: BLOOD TRIGLYCERIDES INCREASED
  7. AVAPRO [Concomitant]

REACTIONS (7)
  - ANOREXIA [None]
  - BLOOD URINE PRESENT [None]
  - DIARRHOEA [None]
  - NAUSEA [None]
  - NEPHROLITHIASIS [None]
  - URINARY TRACT INFECTION [None]
  - VOMITING [None]
